APPROVED DRUG PRODUCT: ORAGRAFIN CALCIUM
Active Ingredient: IPODATE CALCIUM
Strength: 3GM/PACKET
Dosage Form/Route: GRANULE;ORAL
Application: N012968 | Product #001
Applicant: BRACCO DIAGNOSTICS INC
Approved: Approved Prior to Jan 1, 1982 | RLD: No | RS: No | Type: DISCN